FAERS Safety Report 4884371-8 (Version None)
Quarter: 2006Q1

REPORT INFORMATION
  Report Type: 
  Country: None (occurrence: None)
  Receive Date: 20060117
  Receipt Date: 20060117
  Transmission Date: 20060701
  Serious: Yes (Other)
  Sender: FDA-Public Use
  Company Number: None

PATIENT
  Sex: Female

DRUGS (1)
  1. HERCEPTIN [Suspect]
     Dosage: 440 MG TRASTUZUMAB LOADING DOSE 4MG/KG THEREAFTER 2MG/KG Q WEEKLY IV
     Route: 042

REACTIONS (1)
  - EJECTION FRACTION DECREASED [None]
